FAERS Safety Report 5662172-0 (Version None)
Quarter: 2008Q1

REPORT INFORMATION
  Report Type: 
  Country: None (occurrence: None)
  Receive Date: 20080310
  Receipt Date: 20080310
  Transmission Date: 20080703
  Serious: No
  Sender: FDA-Public Use
  Company Number: None

PATIENT
  Sex: Male
  Weight: 30.6 kg

DRUGS (5)
  1. CYTARABINE [Suspect]
     Dosage: 8800 MG
  2. IDARUBICIN HCL [Suspect]
     Dosage: 39 MG
  3. LESTAURTINIB [Suspect]
     Dosage: 2640 MG
  4. LESTAURTINIB [Suspect]
  5. AMBISOME [Concomitant]

REACTIONS (6)
  - HAEMOGLOBIN ABNORMAL [None]
  - HYPERGLYCAEMIA [None]
  - HYPERKALAEMIA [None]
  - HYPOKALAEMIA [None]
  - MUCOSAL INFLAMMATION [None]
  - PLATELET FUNCTION TEST ABNORMAL [None]
